FAERS Safety Report 5592338-X (Version None)
Quarter: 2008Q1

REPORT INFORMATION
  Report Type: 
  Country: None (occurrence: None)
  Receive Date: 20080111
  Receipt Date: 20071226
  Transmission Date: 20080703
  Serious: Yes (Other)
  Sender: FDA-Public Use
  Company Number: 2007JP005267

PATIENT
  Age: 62 Year
  Sex: Male
  Weight: 50.8 kg

DRUGS (9)
  1. PROGRAF            (TACROLIMUS) [Suspect]
     Indication: RHEUMATOID ARTHRITIS
     Dosage: 1 MG, UID/QD, ORAL
     Route: 048
     Dates: start: 20070809
  2. REMICADE [Suspect]
     Indication: RHEUMATOID ARTHRITIS
     Dosage: 3 MG/KG, IV DRIP
     Route: 041
     Dates: start: 20041101, end: 20071004
  3. PREDNISOLONE [Suspect]
     Indication: RHEUMATOID ARTHRITIS
     Dosage: 5 MG, UID/QD, ORAL; 5 MG, TID, ORAL; 4 MG, ORAL
     Route: 048
     Dates: start: 20020601, end: 20021201
  4. PREDNISOLONE [Suspect]
     Indication: RHEUMATOID ARTHRITIS
     Dosage: 5 MG, UID/QD, ORAL; 5 MG, TID, ORAL; 4 MG, ORAL
     Route: 048
     Dates: start: 20020201, end: 20040926
  5. PREDNISOLONE [Suspect]
     Indication: RHEUMATOID ARTHRITIS
     Dosage: 5 MG, UID/QD, ORAL; 5 MG, TID, ORAL; 4 MG, ORAL
     Route: 048
     Dates: start: 20040927
  6. RHEUMATREX [Suspect]
     Indication: RHEUMATOID ARTHRITIS
     Dosage: 8 MG, WEEKLY, ORAL
     Route: 048
     Dates: start: 20030101
  7. ZOLPIDEM TARTRATE [Concomitant]
  8. LANSOPRAZOLE [Concomitant]
  9. MOBIC [Concomitant]

REACTIONS (4)
  - CONDITION AGGRAVATED [None]
  - RHEUMATOID ARTHRITIS [None]
  - SEPSIS [None]
  - TUBERCULOUS PLEURISY [None]
